FAERS Safety Report 5607664-5 (Version None)
Quarter: 2008Q1

REPORT INFORMATION
  Report Type: 
  Country: None (occurrence: None)
  Receive Date: 20080128
  Receipt Date: 20080128
  Transmission Date: 20080703
  Serious: No
  Sender: FDA-Public Use
  Company Number: None

PATIENT
  Age: 37 Year
  Sex: Female
  Weight: 81.1939 kg

DRUGS (1)
  1. ZOLPIDEM TATRATE 5 MG, 10MG TEVA [Suspect]
     Indication: INSOMNIA
     Dosage: 5 OR 10 MG AT BEDTIME PO
     Route: 048
     Dates: start: 20010115, end: 20080122

REACTIONS (5)
  - ABNORMAL SLEEP-RELATED EVENT [None]
  - HUNGER [None]
  - SEDATION [None]
  - SOMNOLENCE [None]
  - WEIGHT DECREASED [None]
